FAERS Safety Report 20741876 (Version 1)
Quarter: 2022Q2

REPORT INFORMATION
  Report Type: Other
  Country: CN (occurrence: None)
  Receive Date: 20220423
  Receipt Date: 20220423
  Transmission Date: 20220720
  Serious: Yes (Other)
  Sender: FDA-Public Use
  Company Number: CN-ROCHE-3081727

PATIENT
  Age: 58 Year
  Sex: Male
  Weight: 105 kg

DRUGS (8)
  1. BEVACIZUMAB [Suspect]
     Active Substance: BEVACIZUMAB
     Indication: Peritoneal mesothelioma malignant
     Dosage: FIRST AND SECOND CYCLE: DAY 0
     Route: 058
  2. BEVACIZUMAB [Suspect]
     Active Substance: BEVACIZUMAB
     Dosage: THIRD CYCLE DAY 0
     Route: 058
  3. PEMETREXED [Suspect]
     Active Substance: PEMETREXED
     Indication: Peritoneal mesothelioma malignant
     Dosage: FIRST AND SECOND CYCLE: DAY 1
     Route: 058
  4. PEMETREXED [Suspect]
     Active Substance: PEMETREXED
     Dosage: THIRD CYCLE: DAY 1
     Route: 058
  5. PEMETREXED [Suspect]
     Active Substance: PEMETREXED
     Dosage: FOURTH CYCLE DAY 1
     Route: 058
  6. CISPLATIN [Suspect]
     Active Substance: CISPLATIN
     Indication: Peritoneal mesothelioma malignant
     Dosage: FIRST AND SECOND CYCLE: DAY 1, 30MG ON DAY 2 AND DAY 3.
     Route: 058
  7. CISPLATIN [Suspect]
     Active Substance: CISPLATIN
     Dosage: THIRD CYCLE: DAY 1, 30MG ON DAY 2 AND DAY 3
     Route: 058
  8. CISPLATIN [Suspect]
     Active Substance: CISPLATIN
     Dosage: FOURTH CYCLE DAY 1, 30 MG ON DAY 2 AND DAY 3.
     Route: 058

REACTIONS (3)
  - Myelosuppression [Recovering/Resolving]
  - Immunodeficiency [Recovering/Resolving]
  - Dysphagia [Recovering/Resolving]
